FAERS Safety Report 4452143-4 (Version None)
Quarter: 2004Q3

REPORT INFORMATION
  Report Type: 
  Country: None (occurrence: None)
  Receive Date: 20040917
  Receipt Date: 20040817
  Transmission Date: 20050211
  Serious: Yes (Life-Threatening)
  Sender: FDA-Public Use
  Company Number: HQWYE499724AUG04

PATIENT
  Age: 7 Year
  Sex: Female

DRUGS (6)
  1. ENBREL [Suspect]
     Indication: JUVENILE ARTHRITIS
     Dosage: UNKNOWN
     Dates: start: 20010101, end: 20020101
  2. ENBREL [Suspect]
     Dosage: UNKNOWN
     Dates: start: 20020101, end: 20030101
  3. ENBREL [Suspect]
     Dates: start: 20030801
  4. METHOTREXATE [Suspect]
     Indication: JUVENILE ARTHRITIS
     Dosage: UNKNOWN DOSE AND FREQUENCY
     Dates: start: 20010101
  5. PREDNISOLONE [Suspect]
     Indication: JUVENILE ARTHRITIS
     Dosage: UNKNOWN DOSE AND REGIMEN
     Dates: start: 20010101, end: 20030101
  6. CYCLOSPORINE [Suspect]
     Indication: JUVENILE ARTHRITIS
     Dosage: UNKNOWN DOSE AND FREQUENCY
     Dates: start: 20010101, end: 20030101

REACTIONS (5)
  - AMYLOIDOSIS [None]
  - CONDITION AGGRAVATED [None]
  - HISTIOCYTOSIS HAEMATOPHAGIC [None]
  - JUVENILE ARTHRITIS [None]
  - TRANSAMINASES INCREASED [None]
